FAERS Safety Report 6611500-8 (Version None)
Quarter: 2010Q1

REPORT INFORMATION
  Report Type: 
  Country: None (occurrence: None)
  Receive Date: 20100303
  Receipt Date: 20100218
  Transmission Date: 20100710
  Serious: Yes (Hospitalization, Other)
  Sender: FDA-Public Use
  Company Number: PHHY2010BR01021

PATIENT
  Sex: Female

DRUGS (9)
  1. FORASEQ [Suspect]
     Indication: ASTHMA
     Dosage: 400 UG, BID
  2. FORASEQ [Suspect]
     Dosage: 400 UG, TID
  3. BUDECORT AQUA [Concomitant]
     Dosage: UNK
  4. METICORTEN [Concomitant]
     Dosage: PRN
  5. ENALAPRIL MALEATE [Concomitant]
     Indication: HYPERTENSION
     Dosage: 25 MG/DAY
     Route: 048
  6. FLUOXETINE HCL [Concomitant]
     Dosage: 10 MG, QD
  7. FRONTAL [Concomitant]
     Indication: ANXIETY
     Dosage: BID
  8. MIFLONIDE [Concomitant]
  9. SERUM PHYSIOLOGICAL [Concomitant]
     Dosage: UNK

REACTIONS (7)
  - ASTHMA [None]
  - BLOOD LACTIC ACID INCREASED [None]
  - BRONCHOSPASM [None]
  - CHEST PAIN [None]
  - DYSPNOEA [None]
  - LUNG DISORDER [None]
  - MUSCLE RIGIDITY [None]
